FAERS Safety Report 7201334-8 (Version None)
Quarter: 2010Q4

REPORT INFORMATION
  Report Type: 
  Country: None (occurrence: None)
  Receive Date: 20101229
  Receipt Date: 20101214
  Transmission Date: 20110411
  Serious: Yes (Hospitalization, Other)
  Sender: FDA-Public Use
  Company Number: US-RANBAXY-2010RR-40693

PATIENT

DRUGS (2)
  1. CIPROFLOXACIN [Suspect]
     Indication: PNEUMONIA
     Dosage: UNK
     Dates: start: 20060101
  2. LEVAQUIN [Suspect]
     Indication: PNEUMONIA
     Dosage: UNK
     Route: 048
     Dates: start: 20060322, end: 20060331

REACTIONS (2)
  - JOINT DISLOCATION [None]
  - TENDON RUPTURE [None]
